FAERS Safety Report 9235889 (Version 2)
Quarter: 2013Q2

REPORT INFORMATION
  Report Type: Spontaneous
  Country: JP (occurrence: JP)
  Receive Date: 20130417
  Receipt Date: 20130501
  Transmission Date: 20140414
  Serious: Yes (Other)
  Sender: FDA-Public Use
  Company Number: JP-ASTELLAS-2013JP004941

PATIENT
  Sex: Female

DRUGS (6)
  1. PROTOPIC [Suspect]
     Indication: DERMATITIS ATOPIC
     Dosage: UNK
     Route: 061
     Dates: start: 20041119
  2. ALMETA [Concomitant]
     Indication: DERMATITIS ATOPIC
     Route: 061
  3. TENORMIN [Concomitant]
     Route: 048
  4. TEXMETEN [Concomitant]
     Indication: DERMATITIS ATOPIC
     Dosage: 5 G, UID/QD
     Route: 061
     Dates: start: 20041119
  5. HIRUDOID                           /00723701/ [Concomitant]
     Indication: DERMATITIS ATOPIC
     Dosage: 5 G, UID/QD
     Route: 061
     Dates: start: 20041119
  6. TALION                             /01587402/ [Concomitant]
     Indication: DERMATITIS ATOPIC
     Dosage: 5 G, BID
     Route: 048
     Dates: start: 20041119

REACTIONS (1)
  - Steatocystoma multiplex [Not Recovered/Not Resolved]
